FAERS Safety Report 9566797 (Version 1)
Quarter: 2013Q3

REPORT INFORMATION
  Report Type: Spontaneous
  Country: US (occurrence: US)
  Receive Date: 20130930
  Receipt Date: 20130930
  Transmission Date: 20140515
  Serious: No
  Sender: FDA-Public Use
  Company Number: US-AMGEN-USASP2012060010

PATIENT
  Age: 27 Year
  Sex: Female

DRUGS (1)
  1. ENBREL [Suspect]
     Indication: PSORIASIS
     Dosage: 50 UNK, 2 TIMES/WK
     Route: 058
     Dates: start: 20080101

REACTIONS (2)
  - Urticaria [Recovered/Resolved]
  - Psoriasis [Recovered/Resolved]
